FAERS Safety Report 9099087 (Version 2)
Quarter: 2013Q1

REPORT INFORMATION
  Report Type: Spontaneous
  Country: CZ (occurrence: CZ)
  Receive Date: 20130213
  Receipt Date: 20130315
  Transmission Date: 20140127
  Serious: Yes (Other)
  Sender: FDA-Public Use
  Company Number: CZ-009507513-1302CZE003529

PATIENT
  Age: 29 Year
  Sex: Male

DRUGS (4)
  1. PEGINTRON [Suspect]
     Indication: HEPATITIS C
     Dosage: 120 MICROGRAM, QW (ONE PER WEEK)
     Route: 058
  2. REBETOL [Suspect]
     Indication: HEPATITIS C
     Dosage: UNK UNK, QD (2-0-3 TABLETS)
     Route: 048
  3. VICTRELIS [Suspect]
     Indication: HEPATITIS C
     Dosage: 4 DF, TID
  4. CITALEC [Concomitant]
     Dosage: 1 DF, QD

REACTIONS (1)
  - Haemorrhoids [Recovered/Resolved]
